FAERS Safety Report 7199414-9 (Version None)
Quarter: 2010Q4

REPORT INFORMATION
  Report Type: 
  Country: None (occurrence: None)
  Receive Date: 20101228
  Receipt Date: 20101221
  Transmission Date: 20110411
  Serious: Yes (Hospitalization, Other)
  Sender: FDA-Public Use
  Company Number: SE-PFIZER INC-2010131533

PATIENT
  Age: 34 Year
  Sex: Female

DRUGS (3)
  1. SALAZOPYRIN [Suspect]
     Indication: POLYARTHRITIS
     Dosage: 500 MG, UNK
     Dates: start: 20100608, end: 20100727
  2. SALAZOPYRIN [Suspect]
     Indication: JOINT SWELLING
  3. SALAZOPYRIN [Suspect]
     Indication: ANKYLOSING SPONDYLITIS

REACTIONS (10)
  - BLOOD CREATININE INCREASED [None]
  - CHILLS [None]
  - FATIGUE [None]
  - HEADACHE [None]
  - LIVER FUNCTION TEST ABNORMAL [None]
  - PYREXIA [None]
  - RASH [None]
  - RASH PRURITIC [None]
  - RENAL FUNCTION TEST ABNORMAL [None]
  - TRANSAMINASES INCREASED [None]
